FAERS Safety Report 23759796 (Version 1)
Quarter: 2024Q2

REPORT INFORMATION
  Report Type: Spontaneous
  Country: US (occurrence: US)
  Receive Date: 20240419
  Receipt Date: 20240419
  Transmission Date: 20240716
  Serious: Yes (Other)
  Sender: FDA-Public Use
  Company Number: US-CIPLA LTD.-2024US03079

PATIENT

DRUGS (4)
  1. CELECOXIB [Suspect]
     Active Substance: CELECOXIB
     Indication: Back pain
     Dosage: 200 MILLIGRAM, QD) (TOOK 1 PILL)
     Route: 065
     Dates: start: 20240312, end: 20240312
  2. CELECOXIB [Suspect]
     Active Substance: CELECOXIB
     Dosage: 200 MILLIGRAM, BID (1 IN THE MORNING AND 1 AT NIGHT)
     Route: 065
     Dates: start: 20240313, end: 20240314
  3. FAMOTIDINE [Concomitant]
     Active Substance: FAMOTIDINE
     Indication: Secretion discharge
     Dosage: 20 MILLIGRAM (1 TABLET), PRN (AS NEEDED)
     Route: 065
     Dates: start: 2019
  4. PANTOPRAZOLE [Concomitant]
     Active Substance: PANTOPRAZOLE
     Indication: Secretion discharge
     Dosage: 40 MILLIGRAM, QD
     Route: 065
     Dates: start: 2019

REACTIONS (3)
  - Blindness unilateral [Not Recovered/Not Resolved]
  - Photopsia [Recovered/Resolved]
  - Vitreous floaters [Recovered/Resolved]

NARRATIVE: CASE EVENT DATE: 20240313
